FAERS Safety Report 8468390 (Version 2)
Quarter: 2012Q4

REPORT INFORMATION
  Report Type: Report from Study
  Country: DE (occurrence: DE)
  Receive Date: 20120320
  Receipt Date: 20121008
  Transmission Date: 20130627
  Serious: Yes (Hospitalization)
  Sender: FDA-Public Use
  Company Number: DE-MILLENNIUM PHARMACEUTICALS, INC.-2012-00467

PATIENT

DRUGS (2)
  1. VELCADE [Suspect]
     Indication: MULTIPLE MYELOMA
     Dosage: UNK
     Route: 065
     Dates: start: 20111123, end: 20120108
  2. VELCADE [Suspect]
     Dosage: UNK
     Route: 065
     Dates: start: 20120109

REACTIONS (2)
  - Enterocolitis bacterial [Recovered/Resolved]
  - Sepsis [Recovered/Resolved]
